FAERS Safety Report 9098280 (Version 1)
Quarter: 2013Q1

REPORT INFORMATION
  Report Type: Report from Study
  Country: ID (occurrence: ID)
  Receive Date: 20130213
  Receipt Date: 20130213
  Transmission Date: 20140127
  Serious: Yes (Death)
  Sender: FDA-Public Use
  Company Number: ID-ROCHE-1189488

PATIENT
  Age: 61 Year
  Sex: Female

DRUGS (4)
  1. MABTHERA [Suspect]
     Indication: NON-HODGKIN^S LYMPHOMA RECURRENT
     Route: 041
     Dates: start: 20121019, end: 20121019
  2. IFOSFAMIDE [Concomitant]
     Indication: NON-HODGKIN^S LYMPHOMA RECURRENT
  3. CARBOPLATIN [Concomitant]
     Indication: NON-HODGKIN^S LYMPHOMA RECURRENT
  4. ETOPOSIDE [Concomitant]
     Indication: NON-HODGKIN^S LYMPHOMA RECURRENT

REACTIONS (1)
  - Death [Fatal]
